FAERS Safety Report 4264319-X (Version None)
Quarter: 2004Q1

REPORT INFORMATION
  Report Type: 
  Country: None (occurrence: None)
  Receive Date: 20040105
  Receipt Date: 20031218
  Transmission Date: 20041129
  Serious: Yes (Hospitalization, Other)
  Sender: FDA-Public Use
  Company Number: MEDI-0001221

PATIENT
  Sex: Female

DRUGS (1)
  1. SYNAGIS [Suspect]
     Indication: ANTIVIRAL PROPHYLAXIS
     Dosage: UNKNOWN, 1 IN 30 D, INTRA-MUSCULAR
     Route: 030
     Dates: start: 20031216, end: 20031216

REACTIONS (2)
  - HYPOTONIA [None]
  - UNRESPONSIVE TO PAIN STIMULI [None]
